FAERS Safety Report 8060774-8 (Version None)
Quarter: 2012Q1

REPORT INFORMATION
  Report Type: 
  Country: None (occurrence: None)
  Receive Date: 20120120
  Receipt Date: 20110110
  Transmission Date: 20120608
  Serious: No
  Sender: FDA-Public Use
  Company Number: US-ALLERGAN-1100277US

PATIENT
  Age: 58 Year
  Sex: Female

DRUGS (2)
  1. RESTASIS [Suspect]
     Indication: DRY EYE
     Dosage: 1 GTT, BID
     Dates: start: 20110107
  2. REFRESH PLUS [Concomitant]
     Dosage: UNK
     Dates: start: 20110107

REACTIONS (3)
  - VISION BLURRED [None]
  - EYE DISCHARGE [None]
  - EYE PRURITUS [None]
